FAERS Safety Report 8377871-X (Version None)
Quarter: 2012Q2

REPORT INFORMATION
  Report Type: 
  Country: None (occurrence: None)
  Receive Date: 20120522
  Receipt Date: 20120511
  Transmission Date: 20120825
  Serious: Yes (Other)
  Sender: FDA-Public Use
  Company Number: CA-JNJFOC-20120511696

PATIENT
  Sex: Female
  Weight: 56.8 kg

DRUGS (3)
  1. REMICADE [Suspect]
     Indication: CROHN'S DISEASE
     Route: 042
     Dates: start: 20120403
  2. REMICADE [Suspect]
     Route: 042
     Dates: start: 20020101
  3. ASTHMA INHALER [Concomitant]
     Route: 055

REACTIONS (1)
  - ASTHMA [None]
